FAERS Safety Report 15681850 (Version 1)
Quarter: 2018Q4

REPORT INFORMATION
  Report Type: Spontaneous
  Country: US (occurrence: US)
  Receive Date: 20181203
  Receipt Date: 20181203
  Transmission Date: 20190205
  Serious: Yes (Hospitalization, Other)
  Sender: FDA-Public Use
  Company Number: PHEH2018US050048

PATIENT
  Age: 78 Year
  Weight: 90.72 kg

DRUGS (1)
  1. COSENTYX [Suspect]
     Active Substance: SECUKINUMAB
     Indication: PSORIATIC ARTHROPATHY
     Dosage: 150 MG, QMO
     Route: 003
     Dates: start: 20180603, end: 20181125

REACTIONS (3)
  - Inappropriate schedule of product administration [Unknown]
  - Deep vein thrombosis [Unknown]
  - Groin pain [Unknown]

NARRATIVE: CASE EVENT DATE: 20181115
